FAERS Safety Report 4377333-0 (Version None)
Quarter: 2004Q2

REPORT INFORMATION
  Report Type: 
  Country: None (occurrence: None)
  Receive Date: 20040609
  Receipt Date: 20040526
  Transmission Date: 20050107
  Serious: Yes (Life-Threatening, Hospitalization)
  Sender: FDA-Public Use
  Company Number: RENA-10999

PATIENT
  Age: 36 Year
  Sex: Male
  Weight: 45 kg

DRUGS (7)
  1. RENAGEL [Suspect]
     Indication: HYPERPHOSPHATAEMIA
     Dosage: 1 G TID PO
     Route: 048
     Dates: start: 20040128, end: 20040413
  2. RENAGEL [Suspect]
     Indication: HYPERPHOSPHATAEMIA
     Dosage: 0.5 G TID PO
     Route: 048
     Dates: start: 20031022, end: 20040127
  3. RENAGEL [Suspect]
     Indication: HYPERPHOSPHATAEMIA
     Dosage: 0.5 G BID PO
     Route: 048
     Dates: start: 20030924, end: 20031021
  4. CALTAN [Concomitant]
  5. PREDNISOLONE [Concomitant]
  6. CYCLOSPORINE [Concomitant]
  7. GLYCYRRHIZA [Concomitant]

REACTIONS (5)
  - ASCITES [None]
  - HAEMODIALYSIS [None]
  - LARGE INTESTINE PERFORATION [None]
  - PERITONITIS [None]
  - WHITE BLOOD CELL COUNT DECREASED [None]
